FAERS Safety Report 6703837-9 (Version None)
Quarter: 2010Q2

REPORT INFORMATION
  Report Type: 
  Country: None (occurrence: None)
  Receive Date: 20100430
  Receipt Date: 20100421
  Transmission Date: 20101027
  Serious: Yes (Hospitalization)
  Sender: FDA-Public Use
  Company Number: DE-PFIZER INC-2010050266

PATIENT
  Age: 91 Year
  Sex: Female

DRUGS (10)
  1. NORVASC [Suspect]
     Indication: HYPERTENSION
     Dosage: 5 MG, UNK
     Route: 048
     Dates: start: 20080924
  2. HYDROCHLOROTHIAZIDE [Suspect]
     Indication: RENAL FAILURE
     Dosage: 25 MG, 1X/DAY
     Route: 048
     Dates: start: 20080924
  3. LASIX [Suspect]
     Indication: RENAL FAILURE
     Dosage: 40 MG, 2X/DAY
     Route: 048
     Dates: start: 20080924
  4. METOPROLOL SUCCINATE [Suspect]
     Indication: HYPERTENSION
     Dosage: UNK
     Route: 048
     Dates: start: 20080924
  5. KALIUM [Suspect]
     Indication: HYPOKALAEMIA
     Dosage: UNK
     Route: 048
     Dates: start: 20080924
  6. LEVOTHYROXINE SODIUM [Suspect]
     Indication: HYPOTHYROIDISM
     Dosage: 75 MG, 1X/DAY
     Route: 048
     Dates: start: 20080924
  7. ASPIRIN [Suspect]
     Indication: THROMBOSIS PROPHYLAXIS
     Dosage: 100 MG, 1X/DAY
     Dates: start: 20080924
  8. BETAMETHASONE VALERATE [Suspect]
     Indication: ECZEMA
     Dosage: UNK
     Route: 061
     Dates: start: 20090716
  9. ALLOPURINOL [Suspect]
     Indication: HYPERURICAEMIA
     Dosage: 300 MG, 1X/DAY
     Route: 048
     Dates: start: 20090629
  10. CORVATON [Suspect]
     Indication: CARDIAC FAILURE
     Dosage: 8 MG, 1X/DAY
     Route: 048
     Dates: start: 20080924

REACTIONS (2)
  - STEVENS-JOHNSON SYNDROME [None]
  - TOXIC EPIDERMAL NECROLYSIS [None]
